FAERS Safety Report 7769885-5 (Version None)
Quarter: 2011Q3

REPORT INFORMATION
  Report Type: 
  Country: None (occurrence: None)
  Receive Date: 20110922
  Receipt Date: 20110916
  Transmission Date: 20111222
  Serious: Yes (Other)
  Sender: FDA-Public Use
  Company Number: NO-ROCHE-803572

PATIENT
  Sex: Female

DRUGS (2)
  1. HERCEPTIN [Suspect]
     Route: 042
     Dates: end: 20100101
  2. HERCEPTIN [Suspect]
     Indication: BREAST CANCER
     Dosage: LOADING DOSE
     Route: 042

REACTIONS (1)
  - SUICIDAL IDEATION [None]
